FAERS Safety Report 17311231 (Version 1)
Quarter: 2020Q1

REPORT INFORMATION
  Report Type: Spontaneous
  Country: US (occurrence: US)
  Receive Date: 20200123
  Receipt Date: 20200123
  Transmission Date: 20200409
  Serious: No
  Sender: FDA-Public Use
  Company Number: US-ROCHE-2239713

PATIENT
  Sex: Male

DRUGS (12)
  1. ALLOPURINOL SODIUM. [Concomitant]
     Active Substance: ALLOPURINOL SODIUM
     Route: 065
  2. PRALUENT [Concomitant]
     Active Substance: ALIROCUMAB
     Indication: PEMPHIGOID
     Route: 058
  3. ASPIRIN [ACETYLSALICYLIC ACID] [Concomitant]
     Active Substance: ASPIRIN
     Dosage: DELAYED RELEASE TABLET
     Route: 048
  4. MAXITROL [Concomitant]
     Active Substance: DEXAMETHASONE\NEOMYCIN SULFATE\POLYMYXIN B SULFATE
     Dosage: 3.5-10000-0.1 1 APPLICATION
     Route: 047
  5. GLUCOPHAGE [Concomitant]
     Active Substance: METFORMIN HYDROCHLORIDE
     Dosage: WITH MEAL
     Route: 048
  6. JANUVIA [Concomitant]
     Active Substance: SITAGLIPTIN PHOSPHATE
     Route: 048
  7. PREDNISONE. [Concomitant]
     Active Substance: PREDNISONE
     Route: 048
  8. GEMFIBROZIL. [Concomitant]
     Active Substance: GEMFIBROZIL
     Route: 048
  9. SPIRONOLACTONE. [Concomitant]
     Active Substance: SPIRONOLACTONE
  10. RITUXAN [Suspect]
     Active Substance: RITUXIMAB
     Indication: PEMPHIGOID
     Route: 065
     Dates: start: 201810
  11. FUROSEMIDE. [Concomitant]
     Active Substance: FUROSEMIDE
     Dosage: ONCE IN 2 TO 3 DAYS
     Route: 048
  12. BYDUREON [Concomitant]
     Active Substance: EXENATIDE
     Route: 058

REACTIONS (11)
  - Dyspnoea [Unknown]
  - Abdominal pain [Unknown]
  - Intentional product use issue [Unknown]
  - Eye pain [Unknown]
  - Chest pain [Unknown]
  - Night sweats [Unknown]
  - Cough [Unknown]
  - Arthralgia [Unknown]
  - Vision blurred [Unknown]
  - Off label use [Unknown]
  - Headache [Unknown]
